FAERS Safety Report 9135827 (Version 1)
Quarter: 2013Q1

REPORT INFORMATION
  Report Type: Spontaneous
  Country: US (occurrence: US)
  Receive Date: 20130304
  Receipt Date: 20130304
  Transmission Date: 20140127
  Serious: No
  Sender: FDA-Public Use
  Company Number: US-ABBOTT-12P-163-0976117-00

PATIENT
  Age: 59 Year
  Sex: Female
  Weight: 63.56 kg

DRUGS (5)
  1. ANDROGEL [Suspect]
     Indication: ACCIDENTAL EXPOSURE TO PRODUCT
     Dates: start: 20120902, end: 20120902
  2. BABY ASPIRIN [Concomitant]
     Indication: RED BLOOD CELL COUNT INCREASED
  3. PRAVACHOL [Concomitant]
     Indication: BLOOD CHOLESTEROL INCREASED
  4. PROZAC [Concomitant]
     Indication: SLEEP DISORDER
  5. PROZAC [Concomitant]
     Indication: DEPRESSION

REACTIONS (4)
  - Accidental exposure to product [Recovered/Resolved]
  - Eyelid irritation [Recovered/Resolved]
  - Eye irritation [Recovered/Resolved]
  - Dry eye [Recovered/Resolved]
